FAERS Safety Report 9304415 (Version 2)
Quarter: 2013Q4

REPORT INFORMATION
  Report Type: Spontaneous
  Country: GB (occurrence: GB)
  Receive Date: 20130522
  Receipt Date: 20131206
  Transmission Date: 20140711
  Serious: Yes (Hospitalization)
  Sender: FDA-Public Use
  Company Number: GB-WATSON-2013-08912

PATIENT
  Age: 58 Year
  Sex: Male

DRUGS (2)
  1. LOSARTAN [Suspect]
     Indication: HYPERTENSION
     Dosage: 100 MG, UNKNOWN
     Route: 048
  2. SIMVASTATIN [Concomitant]
     Indication: HYPERCHOLESTEROLAEMIA
     Dosage: 20 MG, UNKNOWN
     Route: 048

REACTIONS (2)
  - Blood pressure increased [Recovered/Resolved]
  - Drug ineffective [Recovered/Resolved]
